APPROVED DRUG PRODUCT: TOLBUTAMIDE
Active Ingredient: TOLBUTAMIDE
Strength: 500MG
Dosage Form/Route: TABLET;ORAL
Application: A087541 | Product #001
Applicant: ASCOT HOSP PHARMACEUTICALS INC DIV TRAVENOL LABORATORIES INC
Approved: Mar 1, 1983 | RLD: No | RS: No | Type: DISCN